FAERS Safety Report 24526844 (Version 2)
Quarter: 2024Q4

REPORT INFORMATION
  Report Type: Spontaneous
  Country: CA (occurrence: CA)
  Receive Date: 20241021
  Receipt Date: 20241217
  Transmission Date: 20250115
  Serious: Yes (Hospitalization, Disabling)
  Sender: CELLTRION
  Company Number: CA-PFIZER INC-202101211940

PATIENT

DRUGS (4)
  1. INFLECTRA [Suspect]
     Active Substance: INFLIXIMAB-DYYB
     Indication: Crohn^s disease
     Dosage: 5 MG/KG, EVERY 6 WEEKS
     Route: 042
     Dates: start: 20201123
  2. INFLECTRA [Suspect]
     Active Substance: INFLIXIMAB-DYYB
     Dosage: 5 MG/KG (300 MG), EVERY 6 WEEKS
     Route: 042
     Dates: start: 20210909, end: 20210909
  3. INFLECTRA [Suspect]
     Active Substance: INFLIXIMAB-DYYB
     Dosage: 5 MG/KG, EVERY 6 WEEKS
     Route: 042
  4. TYLENOL [Concomitant]
     Active Substance: ACETAMINOPHEN
     Dosage: 650 MG
     Dates: start: 20210909

REACTIONS (6)
  - Fall [Unknown]
  - Pelvic fracture [Unknown]
  - Heart rate decreased [Unknown]
  - Off label use [Unknown]
  - Off label use [Unknown]
  - Intentional product use issue [Unknown]

NARRATIVE: CASE EVENT DATE: 20201123
